FAERS Safety Report 9553534 (Version 1)
Quarter: 2013Q3

REPORT INFORMATION
  Report Type: Spontaneous
  Country: US (occurrence: None)
  Receive Date: 20130724
  Receipt Date: 20130724
  Transmission Date: 20140515
  Serious: Yes (Other)
  Sender: FDA-Public Use
  Company Number: PHEH2012US006801

PATIENT
  Sex: 0

DRUGS (13)
  1. RECLAST [Suspect]
     Indication: OSTEOPOROSIS
     Dates: start: 20120103
  2. DIOVAN (VALSARTAN) [Concomitant]
  3. LYRICA (PREGABALIN) [Concomitant]
  4. WARFARIN (WARFARIN) [Concomitant]
  5. HYDROCHLOROTHIAZIDE (HYDROCHLOROTHIAZIDE) [Concomitant]
  6. POTASSIUM CHLORIDE (POTASSIUM CHLORIDE) [Concomitant]
  7. SIMVASTATIN (SIMVASTATIN) [Concomitant]
  8. ASPIRIN (ACETYLSALICYLIC ACID) [Concomitant]
  9. MULTIVITAMINS (ASCORBIC ACID, ERGOCALCIFEROL, FOLIC ACID, NICOTINAMIDE, PANTHENOL, RETINOL, RIBOFLAVIN, THIAMINE HYDROCHLORIDE) [Concomitant]
  10. VITAMIN D (ERGOCALCIFEROL) [Concomitant]
  11. MVI (VITAMINS NOS) [Concomitant]
  12. COREG (CARVEDILOL) [Concomitant]
  13. ASA (ACETYLSALICYLIC ACID) [Concomitant]

REACTIONS (7)
  - Nausea [None]
  - Bone pain [None]
  - Vomiting [None]
  - Gait disturbance [None]
  - Muscle spasms [None]
  - Musculoskeletal pain [None]
  - Pain in extremity [None]
